FAERS Safety Report 8286992-1 (Version None)
Quarter: 2012Q2

REPORT INFORMATION
  Report Type: 
  Country: None (occurrence: None)
  Receive Date: 20120416
  Receipt Date: 20120405
  Transmission Date: 20120825
  Serious: Yes (Other)
  Sender: FDA-Public Use
  Company Number: BR-AMGEN-BRASP2012017393

PATIENT
  Sex: Male
  Weight: 82 kg

DRUGS (7)
  1. LOSARTAN POTASSIUM [Concomitant]
     Dosage: UNK
  2. ATENOLOL [Concomitant]
     Dosage: 50 MG, UNK
  3. ENBREL [Suspect]
     Indication: ANKYLOSING SPONDYLITIS
     Dosage: 50 MG, 1X/ WEEK
     Route: 058
     Dates: start: 20090217
  4. CLONAZEPAM [Concomitant]
     Dosage: UNK
  5. OMEPRAZOLE [Concomitant]
     Dosage: UNK
  6. AMITRIPTYLINE HCL [Concomitant]
     Dosage: UNK
  7. CALCIUM CARBONATE [Concomitant]
     Dosage: UNK

REACTIONS (6)
  - MALAISE [None]
  - MOVEMENT DISORDER [None]
  - INJECTION SITE PAIN [None]
  - BONE DISORDER [None]
  - RESPIRATORY DISORDER [None]
  - DRUG INEFFECTIVE [None]
